FAERS Safety Report 10553420 (Version 2)
Quarter: 2015Q1

REPORT INFORMATION
  Report Type: Spontaneous
  Country: US (occurrence: None)
  Receive Date: 20141020
  Receipt Date: 20150120
  Transmission Date: 20150720
  Serious: Yes (Other)
  Sender: FDA-Public Use
  Company Number: AEGR000560

PATIENT
  Age: 48 Year
  Sex: Female
  Weight: 70.7 kg

DRUGS (16)
  1. NIASPAN (NICOTINIC ACID) [Concomitant]
  2. LEFLUNOMIDE. [Concomitant]
     Active Substance: LEFLUNOMIDE
  3. TOPROL (METOPROLOL SUCCINATE) [Concomitant]
  4. FOLIC ACID. [Concomitant]
     Active Substance: FOLIC ACID
  5. PRILOSEC (OMEPRAZOLE MAGNESIUM) [Concomitant]
  6. WELLBUTRIN [Concomitant]
     Active Substance: BUPROPION HYDROCHLORIDE
  7. NIACIN (NICOTINIC ACID) [Concomitant]
  8. BUDESONIDE. [Concomitant]
     Active Substance: BUDESONIDE
  9. VYVANSE [Concomitant]
     Active Substance: LISDEXAMFETAMINE DIMESYLATE
  10. ASPIRIN (ACETYLSALICYLIC ACID) [Concomitant]
     Active Substance: ASPIRIN
  11. VITAMIN E (TOCOPHERYL ACETATE) [Concomitant]
  12. METHSCOPOLAMINE BROMIDE (HYOSCINE METHOBROMIDE) [Concomitant]
  13. CO Q10 (UBIDECARENONE) [Concomitant]
  14. SYNTHROID [Concomitant]
     Active Substance: LEVOTHYROXINE SODIUM
  15. OMEGA 3-6-9 (FISH OIL, TOCOPHEROL) [Concomitant]
  16. JUXTAPID [Suspect]
     Active Substance: LOMITAPIDE MESYLATE
     Indication: TYPE IIA HYPERLIPIDAEMIA
     Route: 048
     Dates: start: 201406, end: 2014

REACTIONS (14)
  - Dyspepsia [None]
  - Abdominal pain [None]
  - Abdominal distension [None]
  - Drug dose omission [None]
  - Back pain [None]
  - Headache [None]
  - Abdominal discomfort [None]
  - Hypotension [None]
  - Pain [None]
  - Fatigue [None]
  - Nausea [None]
  - Contusion [None]
  - Weight decreased [None]
  - Insomnia [None]

NARRATIVE: CASE EVENT DATE: 201405
